FAERS Safety Report 8447711-9 (Version None)
Quarter: 2012Q2

REPORT INFORMATION
  Report Type: 
  Country: None (occurrence: None)
  Receive Date: 20120619
  Receipt Date: 20120611
  Transmission Date: 20120825
  Serious: Yes (Other)
  Sender: FDA-Public Use
  Company Number: AT-BRISTOL-MYERS SQUIBB COMPANY-16676785

PATIENT
  Age: 22 Year
  Sex: Female

DRUGS (3)
  1. ARIPIPRAZOLE [Suspect]
     Indication: BIPOLAR I DISORDER
     Dates: start: 20061004
  2. OXCARBAZEPINE [Suspect]
  3. LAMOTRIGINE [Suspect]

REACTIONS (1)
  - MANIA [None]
